FAERS Safety Report 9227486 (Version 1)
Quarter: 2013Q2

REPORT INFORMATION
  Report Type: Spontaneous
  Country: MX (occurrence: MX)
  Receive Date: 20130412
  Receipt Date: 20130412
  Transmission Date: 20140414
  Serious: Yes (Death)
  Sender: FDA-Public Use
  Company Number: PHHY2013MX035379

PATIENT
  Sex: Male

DRUGS (2)
  1. ONBREZ [Suspect]
     Dosage: 300 UG, DAILY
     Dates: start: 201303
  2. MINITRAN [Concomitant]
     Dosage: 1 DF, DAILY

REACTIONS (1)
  - Cardiac arrest [Fatal]
